FAERS Safety Report 5622120-6 (Version None)
Quarter: 2008Q1

REPORT INFORMATION
  Report Type: 
  Country: None (occurrence: None)
  Receive Date: 20080211
  Receipt Date: 20080128
  Transmission Date: 20080703
  Serious: Yes (Hospitalization, Other)
  Sender: FDA-Public Use
  Company Number: GB-ROCHE-538613

PATIENT
  Age: 57 Year
  Sex: Female
  Weight: 84.8 kg

DRUGS (6)
  1. ORLISTAT [Suspect]
     Indication: OBESITY
     Route: 048
     Dates: start: 20071011
  2. QUETAPINE FUMARATE [Concomitant]
     Indication: BIPOLAR DISORDER
     Route: 048
     Dates: start: 20050706
  3. SIMVASTATIN [Concomitant]
     Indication: HYPERLIPIDAEMIA
     Route: 048
     Dates: start: 20070510
  4. FLIXONASE [Concomitant]
     Dosage: ROUTE: NASAL SPRAY. TAKEN WHEN NEEDED.
     Route: 050
  5. IRON TABLETS [Concomitant]
     Indication: ANAEMIA
     Route: 048
  6. GLUCOSAMINE [Concomitant]
     Route: 048

REACTIONS (3)
  - BIPOLAR I DISORDER [None]
  - HYPOTHYROIDISM [None]
  - MENTAL DISORDER [None]
